FAERS Safety Report 23364084 (Version 1)
Quarter: 2024Q1

REPORT INFORMATION
  Report Type: Spontaneous
  Country: US (occurrence: US)
  Receive Date: 20240104
  Receipt Date: 20240104
  Transmission Date: 20240410
  Serious: Yes (Other)
  Sender: FDA-Public Use
  Company Number: US-AVET LIFESCIENCES LTD-2023-AVET-000389

PATIENT
  Age: 49 Year
  Sex: Male
  Weight: 66.1 kg

DRUGS (13)
  1. RIFAMPIN [Interacting]
     Active Substance: RIFAMPIN
     Indication: Antibiotic prophylaxis
     Dosage: UNK
     Route: 042
  2. CABOTEGRAVIR\RILPIVIRINE [Interacting]
     Active Substance: CABOTEGRAVIR\RILPIVIRINE
     Indication: Antiretroviral therapy
     Dosage: 600 MG CAB PLUS 900 MG RPV
     Route: 030
  3. AMIKACIN [Concomitant]
     Active Substance: AMIKACIN
     Indication: Antibiotic prophylaxis
     Dosage: ADMINISTERED PARENTERALLY
  4. MOXIFLOXACIN [Concomitant]
     Active Substance: MOXIFLOXACIN
     Indication: Antibiotic prophylaxis
     Dosage: ADMINISTERED PARENTERALLY
     Route: 051
  5. LINEZOLID [Concomitant]
     Active Substance: LINEZOLID
     Indication: Antibiotic prophylaxis
     Dosage: ADMINISTERED PARENTERALLY
     Route: 051
  6. AMPHOTERICIN B [Concomitant]
     Active Substance: AMPHOTERICIN B
     Indication: Histoplasmosis disseminated
     Dosage: ADMINISTERED PARENTERALLY
     Route: 051
  7. AMPHOTERICIN B [Concomitant]
     Active Substance: AMPHOTERICIN B
     Indication: Endophthalmitis
  8. POSACONAZOLE [Concomitant]
     Active Substance: POSACONAZOLE
     Indication: Histoplasmosis disseminated
     Dosage: ADMINISTERED PARENTERALLY
     Route: 051
  9. POSACONAZOLE [Concomitant]
     Active Substance: POSACONAZOLE
     Indication: Endophthalmitis
  10. ERYTHROMYCIN [Concomitant]
     Active Substance: ERYTHROMYCIN
     Indication: Gastrointestinal motility disorder
     Dosage: ADMINISTERED PARENTERALLY
     Route: 051
  11. DOLUTEGRAVIR [Concomitant]
     Active Substance: DOLUTEGRAVIR
     Indication: Antiretroviral therapy
     Dosage: 50 MILLIGRAM, BID (50 MG TWICE DAILY), ADMINISTERED PARENTERALLY
  12. EMTRICITABINE\TENOFOVIR DISOPROXIL FUMARATE [Concomitant]
     Active Substance: EMTRICITABINE\TENOFOVIR DISOPROXIL FUMARATE
     Indication: Antiretroviral therapy
     Dosage: 200/300 MG ONCE DAILY VIA NASOGASTRIC TUBE
  13. ZIDOVUDINE [Concomitant]
     Active Substance: ZIDOVUDINE
     Dosage: IV 1 MG/KG ZIDOVUDINE ADMINISTERED EVERY 4 HOURS, ADMINISTERED PARENTERALLY
     Route: 042

REACTIONS (2)
  - Drug interaction [Unknown]
  - Drug level decreased [Unknown]
